FAERS Safety Report 25402237 (Version 1)
Quarter: 2025Q2

REPORT INFORMATION
  Report Type: Spontaneous
  Country: PL (occurrence: PL)
  Receive Date: 20250605
  Receipt Date: 20250605
  Transmission Date: 20250716
  Serious: Yes (Other)
  Sender: Steriscience PTE
  Company Number: PL-STERISCIENCE B.V.-2025-ST-001067

PATIENT

DRUGS (2)
  1. AMPICILLIN AND SULBACTAM [Suspect]
     Active Substance: AMPICILLIN SODIUM\SULBACTAM SODIUM
     Indication: Product used for unknown indication
     Route: 064
  2. CEFUROXIME [Suspect]
     Active Substance: CEFUROXIME
     Indication: Product used for unknown indication
     Route: 064

REACTIONS (5)
  - Neonatal respiratory failure [Unknown]
  - Intraventricular haemorrhage neonatal [Unknown]
  - Premature baby [Unknown]
  - Drug ineffective [Unknown]
  - Foetal exposure during pregnancy [Unknown]
